FAERS Safety Report 24888763 (Version 1)
Quarter: 2025Q1

REPORT INFORMATION
  Report Type: Other
  Country: CA (occurrence: CA)
  Receive Date: 20250127
  Receipt Date: 20250127
  Transmission Date: 20250408
  Serious: Yes (Other)
  Sender: SPECTRA MEDICAL DEVICES, LLC
  Company Number: CA-Spectra Medical Devices, LLC-2169864

PATIENT
  Age: 29 Year
  Sex: Female

DRUGS (2)
  1. LIDOCAINE HYDROCHLORIDE [Suspect]
     Active Substance: LIDOCAINE HYDROCHLORIDE
     Indication: Local anaesthesia
  2. EPINEPHRINE [Concomitant]
     Active Substance: EPINEPHRINE

REACTIONS (3)
  - Embolia cutis medicamentosa [Recovering/Resolving]
  - Maternal exposure during delivery [Unknown]
  - Vascular occlusion [Unknown]
